FAERS Safety Report 10132121 (Version 1)
Quarter: 2014Q2

REPORT INFORMATION
  Report Type: Spontaneous
  Country: US (occurrence: US)
  Receive Date: 20140428
  Receipt Date: 20140428
  Transmission Date: 20141212
  Serious: Yes (Other)
  Sender: FDA-Public Use
  Company Number: US-PFIZER INC-2014116579

PATIENT
  Age: 63 Year
  Sex: Male
  Weight: 70.75 kg

DRUGS (8)
  1. CELEBREX [Suspect]
     Indication: PAIN
     Dosage: UNK
  2. LYRICA [Suspect]
     Indication: FACIAL PAIN
     Dosage: UNK
  3. LYRICA [Suspect]
     Indication: PAIN IN EXTREMITY
  4. LYRICA [Suspect]
     Indication: NEUROPATHY PERIPHERAL
  5. OXYCODONE HYDROCHLORIDE [Suspect]
     Indication: PAIN
     Dosage: UNK
  6. FENTANYL LOZENGES [Suspect]
     Indication: PAIN
     Dosage: UNK
  7. MS CONTIN [Suspect]
     Indication: PAIN
     Dosage: UNK
  8. VALIUM [Concomitant]
     Dosage: 5 MG, DAILY

REACTIONS (2)
  - Neuroendocrine carcinoma [Unknown]
  - Spinal disorder [Unknown]
